FAERS Safety Report 4588601-1 (Version None)
Quarter: 2005Q1

REPORT INFORMATION
  Report Type: 
  Country: None (occurrence: None)
  Receive Date: 20050222
  Receipt Date: 20050210
  Transmission Date: 20050727
  Serious: Yes (Hospitalization)
  Sender: FDA-Public Use
  Company Number: US-ROCHE-395248

PATIENT
  Age: 70 Year
  Sex: Female

DRUGS (2)
  1. XELODA [Suspect]
     Indication: COLON CANCER
     Dosage: DAILY
     Route: 048
     Dates: start: 20050105, end: 20050119
  2. CHEMOTHERAPY NOS [Suspect]
     Indication: COLON CANCER
     Route: 042

REACTIONS (12)
  - BLOOD PRESSURE INCREASED [None]
  - DEHYDRATION [None]
  - GASTROINTESTINAL INFECTION [None]
  - HAEMORRHAGE [None]
  - HEART RATE INCREASED [None]
  - INFECTION [None]
  - ORAL INFECTION [None]
  - PAIN [None]
  - PLATELET COUNT DECREASED [None]
  - PNEUMONIA [None]
  - RENAL IMPAIRMENT [None]
  - WHITE BLOOD CELL COUNT DECREASED [None]
